FAERS Safety Report 7043265-2 (Version None)
Quarter: 2010Q4

REPORT INFORMATION
  Report Type: 
  Country: None (occurrence: None)
  Receive Date: 20101013
  Receipt Date: 20091231
  Transmission Date: 20110411
  Serious: No
  Sender: FDA-Public Use
  Company Number: US-ASTRAZENECA-2010SE00015

PATIENT
  Age: 79 Year
  Sex: Female
  Weight: 58.1 kg

DRUGS (2)
  1. SYMBICORT [Suspect]
     Dosage: TOTAL DAILY DOSAGE 640 MCG
     Route: 055
     Dates: start: 20091224
  2. LEVOXYL [Concomitant]

REACTIONS (8)
  - CHEST DISCOMFORT [None]
  - DIZZINESS [None]
  - DYSPEPSIA [None]
  - HEADACHE [None]
  - NAUSEA [None]
  - OROPHARYNGEAL PAIN [None]
  - RHINORRHOEA [None]
  - SINUS DISORDER [None]
